FAERS Safety Report 9609332 (Version 1)
Quarter: 2013Q4

REPORT INFORMATION
  Report Type: Spontaneous
  Country: US (occurrence: None)
  Receive Date: 20131007
  Receipt Date: 20131007
  Transmission Date: 20140711
  Serious: Yes (Hospitalization)
  Sender: FDA-Public Use
  Company Number: None

PATIENT
  Age: 31 Year
  Sex: Female
  Weight: 60 kg

DRUGS (1)
  1. DIVALPROEX [Suspect]

REACTIONS (4)
  - Lethargy [None]
  - Gait disturbance [None]
  - Hyperammonaemia [None]
  - Mental disorder [None]
